FAERS Safety Report 4899053-6 (Version None)
Quarter: 2006Q1

REPORT INFORMATION
  Report Type: 
  Country: None (occurrence: None)
  Receive Date: 20060202
  Receipt Date: 20060124
  Transmission Date: 20060701
  Serious: Yes (Other)
  Sender: FDA-Public Use
  Company Number: GB-JNJFOC-20060105286

PATIENT
  Age: 50 Year
  Sex: Male
  Weight: 83 kg

DRUGS (3)
  1. TRAMADOL HCL [Suspect]
     Indication: PAIN
     Dosage: 1 BD PRN
     Route: 048
     Dates: start: 20050801, end: 20051201
  2. CO-CODAMOL [Concomitant]
     Route: 048
  3. CO-CODAMOL [Concomitant]
     Indication: PAIN
     Route: 048

REACTIONS (1)
  - SWELLING FACE [None]
